FAERS Safety Report 9015922 (Version 1)
Quarter: 2013Q1

REPORT INFORMATION
  Report Type: Spontaneous
  Country: US (occurrence: US)
  Receive Date: 20130116
  Receipt Date: 20130116
  Transmission Date: 20140127
  Serious: No
  Sender: FDA-Public Use
  Company Number: US-TEVA-380785USA

PATIENT
  Sex: Female

DRUGS (1)
  1. NUVIGIL [Suspect]
     Indication: NARCOLEPSY

REACTIONS (4)
  - Hyperhidrosis [Unknown]
  - Pruritus [Unknown]
  - Hypersensitivity [Unknown]
  - Erythema [Unknown]
